FAERS Safety Report 6283737-1 (Version None)
Quarter: 2009Q3

REPORT INFORMATION
  Report Type: 
  Country: None (occurrence: None)
  Receive Date: 20090724
  Receipt Date: 20090720
  Transmission Date: 20100115
  Serious: Yes (Death, Other)
  Sender: FDA-Public Use
  Company Number: FR-MERCK-0811FRA00030

PATIENT
  Age: 92 Year
  Sex: Female

DRUGS (6)
  1. FOSAMAX PLUS D [Suspect]
     Indication: OSTEOPOROSIS
     Route: 048
     Dates: start: 20071001, end: 20081001
  2. CLOPIDOGREL BISULFATE [Concomitant]
     Route: 048
  3. NITROGLYCERIN [Concomitant]
     Route: 061
  4. [THERAPY UNSPECIFIED] [Concomitant]
     Route: 048
  5. [THERAPY UNSPECIFIED] [Concomitant]
     Route: 048
  6. ACETAMINOPHEN [Concomitant]
     Route: 048

REACTIONS (3)
  - ANGINA PECTORIS [None]
  - OSTEONECROSIS [None]
  - TOOTH LOSS [None]
